FAERS Safety Report 11030848 (Version 2)
Quarter: 2015Q2

REPORT INFORMATION
  Report Type: Spontaneous
  Country: US (occurrence: US)
  Receive Date: 20150415
  Receipt Date: 20150506
  Transmission Date: 20150821
  Serious: Yes (Death, Hospitalization, Other)
  Sender: FDA-Public Use
  Company Number: US-PFIZER INC-2015124481

PATIENT
  Age: 59 Year
  Sex: Male
  Weight: 97 kg

DRUGS (27)
  1. SUTENT [Suspect]
     Active Substance: SUNITINIB MALATE
     Indication: METASTATIC RENAL CELL CARCINOMA
     Dosage: 50 MG DAILY FOR 28 DAYS
     Route: 048
     Dates: start: 20150227, end: 20150320
  2. LOPRESSOR [Concomitant]
     Active Substance: METOPROLOL TARTRATE
     Dosage: 50 MG, 2X/DAY
     Route: 048
  3. MIRALAX [Concomitant]
     Active Substance: POLYETHYLENE GLYCOL 3350
     Dosage: 17 G, DAILY, AS NEEDED
     Route: 048
  4. METAXALONE. [Concomitant]
     Active Substance: METAXALONE
     Indication: PAIN
     Dosage: 800 MG 3 TIMES PER DAY AS NEEDED
  5. NITROGLYCERIN. [Concomitant]
     Active Substance: NITROGLYCERIN
     Indication: CHEST PAIN
     Dosage: 0.4 MG EVERY 5 MINUTES, AS NEEDED
     Route: 060
  6. HYDRALAZINE [Concomitant]
     Active Substance: HYDRALAZINE HYDROCHLORIDE
     Indication: BLOOD PRESSURE
     Dosage: 25 MG, 3X/DAY
  7. ZOFRAN [Concomitant]
     Active Substance: ONDANSETRON HYDROCHLORIDE
     Indication: NAUSEA
     Dosage: 4 MG, AS NEEDED
     Route: 042
  8. PERCOCET [Concomitant]
     Active Substance: ACETAMINOPHEN\OXYCODONE HYDROCHLORIDE
     Indication: PAIN
     Dosage: 5/325 MG AS NEEDED
     Route: 048
  9. SIMVASTATIN. [Concomitant]
     Active Substance: SIMVASTATIN
     Dosage: 20 MG, 1X/DAY (AT BEDTIME)
     Route: 048
  10. AMLODIPINE [Concomitant]
     Active Substance: AMLODIPINE BESYLATE
  11. BUMEX [Concomitant]
     Active Substance: BUMETANIDE
     Dosage: 1 MG, 2X/DAY
     Route: 048
  12. IMDUR [Concomitant]
     Active Substance: ISOSORBIDE MONONITRATE
     Dosage: UNK
     Route: 048
  13. JANUVIA [Concomitant]
     Active Substance: SITAGLIPTIN PHOSPHATE
     Dosage: 50 MG, DAILY
     Route: 048
  14. LIDOCAINE. [Concomitant]
     Active Substance: LIDOCAINE
     Dosage: UNK, AS NEEDED (PATCH)
     Route: 061
  15. LOSARTAN POTASSIUM. [Concomitant]
     Active Substance: LOSARTAN POTASSIUM
     Dosage: 50 MG, DAILY
     Route: 048
  16. FENTANYL. [Concomitant]
     Active Substance: FENTANYL
     Indication: PAIN
     Dosage: 25 MCG PATCH EVERY 3 DAYS
     Route: 061
  17. INSULIN LISPRO [Concomitant]
     Active Substance: INSULIN LISPRO
     Dosage: UNK (LOW SLIDING SCALE)
  18. ASPIRIN. [Concomitant]
     Active Substance: ASPIRIN
     Dosage: 81 MG, DAILY
     Route: 048
  19. HEPARIN [Concomitant]
     Active Substance: HEPARIN SODIUM
     Indication: THROMBOSIS PROPHYLAXIS
     Dosage: UNK, 3X/DAY
     Route: 058
  20. TAMSULOSIN [Concomitant]
     Active Substance: TAMSULOSIN
     Dosage: 0.4 MG, DAILY
  21. NORVASC [Concomitant]
     Active Substance: AMLODIPINE BESYLATE
     Dosage: 10 MG, DAILY
     Route: 048
  22. ZOFRAN [Concomitant]
     Active Substance: ONDANSETRON HYDROCHLORIDE
     Indication: VOMITING
  23. PLAVIX [Concomitant]
     Active Substance: CLOPIDOGREL BISULFATE
     Dosage: 75 MG, DAILY
     Route: 048
  24. ERGOCALCIFEROL. [Concomitant]
     Active Substance: ERGOCALCIFEROL
     Dosage: 50000 IU, WEEKLY
     Route: 048
  25. METOPROLOL [Concomitant]
     Active Substance: METOPROLOL
     Indication: BLOOD PRESSURE
     Dosage: 100 MG, 2X/DAY
  26. MORPHINE [Concomitant]
     Active Substance: MORPHINE
     Dosage: UNK, AS NEEDED
     Route: 042
  27. PRAVACHOL [Concomitant]
     Active Substance: PRAVASTATIN SODIUM
     Dosage: 40 MG, DAILY

REACTIONS (19)
  - Mental impairment [Unknown]
  - Peripheral swelling [Unknown]
  - Metastatic renal cell carcinoma [Fatal]
  - Abdominal pain [Unknown]
  - Somnolence [Unknown]
  - Anuria [Unknown]
  - Cough [Unknown]
  - Hyperuricaemia [Unknown]
  - Vomiting [Unknown]
  - Asthenia [Unknown]
  - Urinary tract infection [Unknown]
  - Pancytopenia [Unknown]
  - Dysgeusia [Unknown]
  - Gout [Unknown]
  - Nausea [Unknown]
  - Disease progression [Fatal]
  - Acute kidney injury [Unknown]
  - Diarrhoea [Unknown]
  - Hypogeusia [Unknown]

NARRATIVE: CASE EVENT DATE: 201503
